FAERS Safety Report 16615221 (Version 1)
Quarter: 2019Q3

REPORT INFORMATION
  Report Type: Spontaneous
  Country: US (occurrence: US)
  Receive Date: 20190610
  Receipt Date: 20190610
  Transmission Date: 20191004
  Serious: Yes (Hospitalization)
  Sender: FDA-Public Use
  Company Number: None

PATIENT
  Age: 43 Year
  Sex: Male

DRUGS (2)
  1. CAPECITABINE 500 MG [Suspect]
     Active Substance: CAPECITABINE
     Indication: SMALL INTESTINE CARCINOMA
     Dosage: 14 ON AND 7 OFF
     Route: 048
  2. MELATONIN [Concomitant]
     Active Substance: MELATONIN

REACTIONS (1)
  - Myocardial infarction [None]
